FAERS Safety Report 17044040 (Version 1)
Quarter: 2019Q4

REPORT INFORMATION
  Report Type: Spontaneous
  Country: US (occurrence: US)
  Receive Date: 20191118
  Receipt Date: 20191118
  Transmission Date: 20200122
  Serious: No
  Sender: FDA-Public Use
  Company Number: NVSC2019US038531

PATIENT
  Sex: Male

DRUGS (2)
  1. LAMISIL AT [Suspect]
     Active Substance: TERBINAFINE HYDROCHLORIDE
     Indication: TINEA PEDIS
     Dosage: UNK
     Route: 065
  2. LAMISIL [Suspect]
     Active Substance: TERBINAFINE HYDROCHLORIDE
     Indication: TINEA PEDIS
     Dosage: UNK
     Route: 065

REACTIONS (1)
  - Therapeutic product effect incomplete [Unknown]
